FAERS Safety Report 10296310 (Version 1)
Quarter: 2014Q3

REPORT INFORMATION
  Report Type: Spontaneous
  Country: US (occurrence: None)
  Receive Date: 20140708
  Receipt Date: 20140708
  Transmission Date: 20150326
  Serious: No
  Sender: FDA-Public Use
  Company Number: None

PATIENT
  Age: 53 Year
  Sex: Female
  Weight: 81.65 kg

DRUGS (1)
  1. NASACORT AQ [Suspect]
     Active Substance: TRIAMCINOLONE ACETONIDE
     Indication: MULTIPLE ALLERGIES
     Dosage: OTC, ONCE DAILY
     Dates: start: 20140608, end: 20140619

REACTIONS (8)
  - Asthenia [None]
  - Feeling jittery [None]
  - Pollakiuria [None]
  - Swelling face [None]
  - Epistaxis [None]
  - Dry mouth [None]
  - Nausea [None]
  - Headache [None]

NARRATIVE: CASE EVENT DATE: 20140619
